FAERS Safety Report 6750565-X (Version None)
Quarter: 2010Q2

REPORT INFORMATION
  Report Type: 
  Country: None (occurrence: None)
  Receive Date: 20100528
  Receipt Date: 20100528
  Transmission Date: 20101027
  Serious: Yes (Life-Threatening, Hospitalization, Other)
  Sender: FDA-Public Use
  Company Number: None

PATIENT
  Age: 69 Year
  Sex: Female
  Weight: 54.4316 kg

DRUGS (1)
  1. SULFAMETHOXAZOLE [Suspect]
     Indication: SKIN BACTERIAL INFECTION
     Dosage: 2 DAILY PO
     Route: 048
     Dates: start: 20100503, end: 20100510

REACTIONS (13)
  - APPARENT DEATH [None]
  - ARTHRALGIA [None]
  - BEDRIDDEN [None]
  - COUGH [None]
  - DEPRESSED MOOD [None]
  - DIARRHOEA [None]
  - EUPHORIC MOOD [None]
  - HAEMATOCHEZIA [None]
  - HYPOTENSION [None]
  - MYALGIA [None]
  - RASH GENERALISED [None]
  - RENAL FAILURE [None]
  - SKIN BURNING SENSATION [None]
